FAERS Safety Report 11906024 (Version 3)
Quarter: 2016Q1

REPORT INFORMATION
  Report Type: Spontaneous
  Country: TW (occurrence: TW)
  Receive Date: 20160111
  Receipt Date: 20160201
  Transmission Date: 20160526
  Serious: Yes (Death, Hospitalization, Other)
  Sender: FDA-Public Use
  Company Number: TW-ROCHE-1691883

PATIENT
  Age: 38 Year

DRUGS (1)
  1. PEGASYS [Suspect]
     Active Substance: PEGINTERFERON ALFA-2A
     Indication: HEPATITIS B
     Dosage: 36 WEEKS, DATE OF LAST DOSE PRIOR TO SAE: DEC/2015.
     Route: 065
     Dates: end: 201601

REACTIONS (7)
  - Hydrocephalus [Fatal]
  - Multiple organ dysfunction syndrome [Fatal]
  - Haematemesis [Unknown]
  - Renal failure [Fatal]
  - Chromaturia [Unknown]
  - Jaundice [Not Recovered/Not Resolved]
  - Gastrointestinal haemorrhage [Unknown]

NARRATIVE: CASE EVENT DATE: 201512
